FAERS Safety Report 14596056 (Version 1)
Quarter: 2018Q1

REPORT INFORMATION
  Report Type: Spontaneous
  Country: CA (occurrence: CA)
  Receive Date: 20180303
  Receipt Date: 20180303
  Transmission Date: 20180509
  Serious: Yes (Disabling)
  Sender: FDA-Public Use
  Company Number: CA-TEVA-662679USA

PATIENT
  Sex: Female
  Weight: 52 kg

DRUGS (2)
  1. RITUXAN [Suspect]
     Active Substance: RITUXIMAB
     Indication: MANTLE CELL LYMPHOMA
     Dosage: 375 MG/M2 DAILY;
     Route: 042
  2. TREANDA [Suspect]
     Active Substance: BENDAMUSTINE HYDROCHLORIDE
     Indication: MANTLE CELL LYMPHOMA
     Dosage: 90 MG/M2 DAILY; SINGLE USE, POWDER FOR SOLUTION INTRAVENOUS
     Route: 042

REACTIONS (3)
  - Weight decreased [Not Recovered/Not Resolved]
  - Tooth extraction [Not Recovered/Not Resolved]
  - Off label use [Unknown]
